APPROVED DRUG PRODUCT: FUSILEV
Active Ingredient: LEVOLEUCOVORIN CALCIUM
Strength: EQ 50MG BASE/VIAL
Dosage Form/Route: POWDER;INTRAVENOUS
Application: N020140 | Product #001
Applicant: ACROTECH BIOPHARMA INC
Approved: Mar 7, 2008 | RLD: Yes | RS: No | Type: DISCN